FAERS Safety Report 18664071 (Version 1)
Quarter: 2020Q4

REPORT INFORMATION
  Report Type: Spontaneous
  Country: US (occurrence: US)
  Receive Date: 20201225
  Receipt Date: 20201225
  Transmission Date: 20210114
  Serious: Yes (Hospitalization, Other)
  Sender: FDA-Public Use
  Company Number: US-SA-2020SA361560

PATIENT

DRUGS (1)
  1. DIPHENHYDRAMINE. [Suspect]
     Active Substance: DIPHENHYDRAMINE
     Dosage: UNK

REACTIONS (5)
  - Intentional overdose [Recovering/Resolving]
  - Ventricular tachycardia [Recovering/Resolving]
  - Loss of consciousness [Recovering/Resolving]
  - Respiratory rate decreased [Recovering/Resolving]
  - Sinus tachycardia [Recovering/Resolving]
